FAERS Safety Report 24280097 (Version 1)
Quarter: 2024Q3

REPORT INFORMATION
  Report Type: Report from Study
  Country: DE (occurrence: DE)
  Receive Date: 20240904
  Receipt Date: 20240904
  Transmission Date: 20241017
  Serious: Yes (Death)
  Sender: EMD SERONO INC
  Company Number: DE-Merck Healthcare KGaA-2024046700

PATIENT
  Age: 72 Year
  Sex: Female

DRUGS (2)
  1. REBIF [Suspect]
     Active Substance: INTERFERON BETA-1A
     Indication: Multiple sclerosis
     Route: 058
     Dates: end: 202203
  2. REBIF [Suspect]
     Active Substance: INTERFERON BETA-1A

REACTIONS (2)
  - Bladder cancer [Fatal]
  - Gastrointestinal carcinoma [Fatal]
